FAERS Safety Report 21969591 (Version 2)
Quarter: 2023Q2

REPORT INFORMATION
  Report Type: Spontaneous
  Country: US (occurrence: US)
  Receive Date: 20230208
  Receipt Date: 20230405
  Transmission Date: 20230721
  Serious: No
  Sender: FDA-Public Use
  Company Number: US-009507513-2302USA001644

PATIENT
  Sex: Male

DRUGS (5)
  1. KEYTRUDA [Suspect]
     Active Substance: PEMBROLIZUMAB
     Indication: Malignant melanoma
     Route: 042
  2. KEYTRUDA [Suspect]
     Active Substance: PEMBROLIZUMAB
     Dosage: STRENGTH:100 MILLIGRAM (MG), 200 MG, EVERY 3 WEEKS (Q3W)
     Dates: start: 20230308, end: 20230308
  3. DUPIXENT [Concomitant]
     Active Substance: DUPILUMAB
     Indication: Hypersensitivity
     Dosage: UNK, Q 14 DAYS
  4. CURAMED [CURCUMA LONGA RHIZOME] [Concomitant]
     Dosage: UNK, TWICE DAILY (BID)
  5. TURKEY TAIL MUSHROOM [Concomitant]
     Dosage: TWICE DAILY (BID)

REACTIONS (3)
  - Sinusitis [Recovering/Resolving]
  - Inability to afford medication [Unknown]
  - Product dose omission issue [Unknown]

NARRATIVE: CASE EVENT DATE: 20230329
